FAERS Safety Report 19766763 (Version 3)
Quarter: 2021Q3

REPORT INFORMATION
  Report Type: Spontaneous
  Country: CA (occurrence: CA)
  Receive Date: 20210830
  Receipt Date: 20210915
  Transmission Date: 20211014
  Serious: Yes (Other)
  Sender: FDA-Public Use
  Company Number: CA-PFIZER INC-2021672075

PATIENT
  Age: 36 Year
  Sex: Male

DRUGS (1)
  1. XELJANZ [Suspect]
     Active Substance: TOFACITINIB CITRATE
     Indication: COLITIS ULCERATIVE
     Dosage: 10 MG, 2X/DAY
     Route: 048
     Dates: start: 20210507

REACTIONS (9)
  - Anal incontinence [Unknown]
  - Rectal lesion [Unknown]
  - Haematochezia [Not Recovered/Not Resolved]
  - Product dose omission in error [Unknown]
  - Abdominal pain [Not Recovered/Not Resolved]
  - Mucous stools [Not Recovered/Not Resolved]
  - Proctitis [Not Recovered/Not Resolved]
  - Therapeutic product effect incomplete [Not Recovered/Not Resolved]
  - Defaecation urgency [Unknown]

NARRATIVE: CASE EVENT DATE: 2021
